FAERS Safety Report 20636485 (Version 2)
Quarter: 2022Q2

REPORT INFORMATION
  Report Type: Report from Study
  Country: CN (occurrence: CN)
  Receive Date: 20220325
  Receipt Date: 20220418
  Transmission Date: 20220721
  Serious: Yes (Hospitalization)
  Sender: FDA-Public Use
  Company Number: CN-GLAXOSMITHKLINE-CN2022GSK053180

PATIENT
  Age: 71 Year
  Sex: Female
  Weight: 54 kg

DRUGS (5)
  1. NIRAPARIB [Suspect]
     Active Substance: NIRAPARIB
     Indication: Gallbladder cancer
     Dosage: 200 MG, QD
     Route: 048
     Dates: start: 20220111, end: 20220318
  2. TEBOTELIMAB [Suspect]
     Active Substance: TEBOTELIMAB
     Indication: Gallbladder cancer
     Dosage: 600 MG, Z-Q2W
     Dates: start: 20220111, end: 20220111
  3. TEBOTELIMAB [Suspect]
     Active Substance: TEBOTELIMAB
     Dosage: 600 MG, Z-Q2W
     Dates: start: 20220318, end: 20220318
  4. METOPROLOL TARTRATE [Concomitant]
     Active Substance: METOPROLOL TARTRATE
     Indication: Tachycardia
     Dosage: 12.5 MG, QD
     Route: 048
     Dates: start: 2018
  5. MECOBALAMIN TABLET [Concomitant]
     Indication: Hypoaesthesia
     Dosage: 0.5 MG, QD
     Route: 048
     Dates: start: 202105

REACTIONS (1)
  - Venous thrombosis limb [Not Recovered/Not Resolved]

NARRATIVE: CASE EVENT DATE: 20220309
